FAERS Safety Report 10195205 (Version 2)
Quarter: 2014Q2

REPORT INFORMATION
  Report Type: Spontaneous
  Country: US (occurrence: US)
  Receive Date: 20140526
  Receipt Date: 20140609
  Transmission Date: 20141212
  Serious: No
  Sender: FDA-Public Use
  Company Number: US-009507513-1405USA013100

PATIENT
  Age: 75 Year
  Sex: Female
  Weight: 88.89 kg

DRUGS (6)
  1. OXYTROL FOR WOMEN [Suspect]
     Indication: HYPERTONIC BLADDER
     Dosage: 1 DF, Q4D
     Route: 062
     Dates: start: 20140430, end: 20140524
  2. VERAPAMIL [Concomitant]
     Indication: HYPERTENSION
     Dosage: UNK, UNKNOWN
  3. ENALAPRIL MALEATE [Concomitant]
     Indication: HYPERTENSION
     Dosage: UNK, UNKNOWN
  4. SYNTHROID [Concomitant]
     Indication: THYROID DISORDER
     Dosage: UNK, UNKNOWN
  5. SINGULAIR [Concomitant]
     Indication: SEASONAL ALLERGY
     Dosage: UNK, UNKNOWN
  6. RHINOCORT (BECLOMETHASONE DIPROPIONATE) [Concomitant]
     Indication: SINUS DISORDER
     Dosage: UNK, UNKNOWN

REACTIONS (3)
  - Rash [Not Recovered/Not Resolved]
  - Drug ineffective [Unknown]
  - Product adhesion issue [Unknown]
